FAERS Safety Report 25886744 (Version 1)
Quarter: 2025Q4

REPORT INFORMATION
  Report Type: Spontaneous
  Country: US (occurrence: None)
  Receive Date: 20251005
  Receipt Date: 20251005
  Transmission Date: 20260118
  Serious: Yes (Other)
  Sender: FDA-CTU
  Company Number: None

PATIENT
  Age: 27 Year
  Sex: Male
  Weight: 112.5 kg

DRUGS (8)
  1. TRULICITY [Suspect]
     Active Substance: DULAGLUTIDE
     Indication: Diabetes mellitus
     Dosage: OTHER FREQUENCY : 1 WEEKLY;?
     Route: 058
     Dates: start: 20251003, end: 20251003
  2. KEPPRA [Concomitant]
     Active Substance: LEVETIRACETAM
  3. ELIQUIS [Concomitant]
     Active Substance: APIXABAN
  4. METFORMIN [Concomitant]
     Active Substance: METFORMIN HYDROCHLORIDE
  5. TRAZODONE [Concomitant]
     Active Substance: TRAZODONE HYDROCHLORIDE
  6. OMEPRAZOLE [Concomitant]
     Active Substance: OMEPRAZOLE
  7. PHENYTOIN [Concomitant]
     Active Substance: PHENYTOIN
  8. ADVIL [Concomitant]
     Active Substance: IBUPROFEN

REACTIONS (7)
  - Abdominal discomfort [None]
  - Vomiting [None]
  - Muscle spasms [None]
  - Pruritus [None]
  - Asthenia [None]
  - Loss of consciousness [None]
  - Seizure [None]

NARRATIVE: CASE EVENT DATE: 20251003
